FAERS Safety Report 4787994-X (Version None)
Quarter: 2005Q3

REPORT INFORMATION
  Report Type: 
  Country: None (occurrence: None)
  Receive Date: 20050914
  Receipt Date: 20050614
  Transmission Date: 20060218
  Serious: Yes (Other)
  Sender: FDA-Public Use
  Company Number: 407924

PATIENT
  Age: 67 Year
  Sex: Female

DRUGS (2)
  1. BONIVA [Suspect]
     Indication: DRUG USE FOR UNKNOWN INDICATION
     Dosage: 150 MG ORAL
     Route: 048
     Dates: start: 20050601
  2. PREVACID [Concomitant]

REACTIONS (1)
  - CHEST PAIN [None]
